FAERS Safety Report 10264858 (Version 1)
Quarter: 2014Q2

REPORT INFORMATION
  Report Type: Spontaneous
  Country: US (occurrence: None)
  Receive Date: 20140625
  Receipt Date: 20140625
  Transmission Date: 20141212
  Serious: Yes (Life-Threatening)
  Sender: FDA-Public Use
  Company Number: None

PATIENT
  Age: 58 Year
  Sex: Male
  Weight: 114 kg

DRUGS (2)
  1. REVLIMID [Suspect]
     Indication: PLASMA CELL MYELOMA
     Dosage: 10-25MG DAILY, ORAL.
     Route: 048
     Dates: start: 20120223, end: 20140509
  2. VELCADE [Suspect]
     Indication: PLASMA CELL MYELOMA
     Dosage: SQ/IV.
     Dates: start: 20111129, end: 20120105

REACTIONS (1)
  - Acute myeloid leukaemia [None]
